FAERS Safety Report 17625764 (Version 1)
Quarter: 2020Q2

REPORT INFORMATION
  Report Type: Spontaneous
  Country: US (occurrence: US)
  Receive Date: 20200404
  Receipt Date: 20200404
  Transmission Date: 20200713
  Serious: No
  Sender: FDA-Public Use
  Company Number: US-AMGEN INC.-USASP2019218533

PATIENT

DRUGS (1)
  1. AIMOVIG [Suspect]
     Active Substance: ERENUMAB-AOOE
     Indication: MIGRAINE
     Dosage: UNK
     Route: 065

REACTIONS (10)
  - Injection site pain [Unknown]
  - Muscle spasms [Unknown]
  - Drug ineffective [Unknown]
  - Gastrointestinal disorder [Not Recovered/Not Resolved]
  - Myalgia [Unknown]
  - Sleep disorder due to general medical condition, insomnia type [Unknown]
  - Pain in extremity [Unknown]
  - Urticaria [Unknown]
  - Adverse drug reaction [Unknown]
  - Paraesthesia [Unknown]
